FAERS Safety Report 8509539-0 (Version None)
Quarter: 2012Q3

REPORT INFORMATION
  Report Type: 
  Country: None (occurrence: None)
  Receive Date: 20120713
  Receipt Date: 20120705
  Transmission Date: 20120928
  Serious: Yes (Other)
  Sender: FDA-Public Use
  Company Number: BR-BRISTOL-MYERS SQUIBB COMPANY-16665754

PATIENT
  Age: 67 Year
  Sex: Female
  Weight: 61 kg

DRUGS (1)
  1. HYDREA [Suspect]
     Indication: ESSENTIAL THROMBOCYTHAEMIA
     Dosage: 1DF: 3CAPS, 2CAPS AND 3 CAPS ON TUESDAYS
     Route: 048
     Dates: start: 20090101

REACTIONS (4)
  - PLATELET COUNT INCREASED [None]
  - NAIL DISCOLOURATION [None]
  - PRODUCT COUNTERFEIT [None]
  - ANAEMIA [None]
